FAERS Safety Report 5841134-4 (Version None)
Quarter: 2008Q3

REPORT INFORMATION
  Report Type: 
  Country: None (occurrence: None)
  Receive Date: 20080811
  Receipt Date: 20080811
  Transmission Date: 20090109
  Serious: Yes (Death)
  Sender: FDA-Public Use
  Company Number: None

PATIENT
  Age: 59 Year
  Sex: Male
  Weight: 76 kg

DRUGS (1)
  1. BEVACIZUMAB [Suspect]
     Indication: COLON CANCER
     Dosage: 380 MG ONCE IV
     Route: 042
     Dates: start: 20080519, end: 20080519

REACTIONS (4)
  - DIVERTICULAR PERFORATION [None]
  - FEBRILE NEUTROPENIA [None]
  - INTESTINAL PERFORATION [None]
  - PERITONITIS [None]
